FAERS Safety Report 8567629-0 (Version None)
Quarter: 2012Q3

REPORT INFORMATION
  Report Type: 
  Country: None (occurrence: None)
  Receive Date: 20120803
  Receipt Date: 20120730
  Transmission Date: 20120928
  Serious: Yes (Death, Life-Threatening)
  Sender: FDA-Public Use
  Company Number: FR-ASTRAZENECA-2012SE53894

PATIENT
  Age: 23635 Day
  Sex: Male
  Weight: 92 kg

DRUGS (7)
  1. ZOFRAN [Concomitant]
  2. REMIFENTANYL [Concomitant]
  3. ACETAMINOPHEN [Concomitant]
  4. CELOCURINE [Suspect]
     Indication: ENDOSCOPY
     Route: 042
     Dates: start: 20120530, end: 20120530
  5. DIPRIVAN [Suspect]
     Indication: ENDOSCOPY
     Route: 042
     Dates: start: 20120530, end: 20120530
  6. LANSOPRAZOLE [Concomitant]
  7. DURAGESIC-100 [Concomitant]

REACTIONS (9)
  - VENTRICULAR TACHYCARDIA [None]
  - VENTRICULAR FIBRILLATION [None]
  - BRADYCARDIA [None]
  - BRONCHOSPASM [None]
  - CARDIO-RESPIRATORY ARREST [None]
  - RESPIRATORY FAILURE [None]
  - HYPOKALAEMIA [None]
  - ARRHYTHMIA SUPRAVENTRICULAR [None]
  - MULTI-ORGAN FAILURE [None]
